FAERS Safety Report 5391839-7 (Version None)
Quarter: 2007Q3

REPORT INFORMATION
  Report Type: 
  Country: None (occurrence: None)
  Receive Date: 20070718
  Receipt Date: 20070712
  Transmission Date: 20080115
  Serious: Yes (Hospitalization)
  Sender: FDA-Public Use
  Company Number: 2007SP014059

PATIENT
  Age: 44 Year
  Sex: Female
  Weight: 59 kg

DRUGS (7)
  1. LONAFARNIB (S-P) [Suspect]
     Indication: GLIOBLASTOMA MULTIFORME
     Dosage: 200 MG; BID; PO
     Route: 048
     Dates: start: 20070706, end: 20070707
  2. TEMODAR [Suspect]
     Indication: GLIOBLASTOMA MULTIFORME
     Dosage: 205 MG; HS; PO
     Route: 048
     Dates: start: 20070629, end: 20070705
  3. AMBIEN (CON.) [Concomitant]
  4. CENTRUM (CON.) [Concomitant]
  5. KEPPRA (CON.) [Concomitant]
  6. NORTRIPTYLINE (CON.) [Concomitant]
  7. ZOFRAN (CON.) [Concomitant]

REACTIONS (7)
  - ASTHENIA [None]
  - BLOOD PRESSURE DECREASED [None]
  - FEBRILE NEUTROPENIA [None]
  - HAEMOGLOBIN DECREASED [None]
  - HEART RATE INCREASED [None]
  - LYMPHOPENIA [None]
  - PNEUMOCYSTIS JIROVECI PNEUMONIA [None]
